FAERS Safety Report 5252491-4 (Version None)
Quarter: 2007Q1

REPORT INFORMATION
  Report Type: 
  Country: None (occurrence: None)
  Receive Date: 20070301
  Receipt Date: 20061218
  Transmission Date: 20070707
  Serious: No
  Sender: FDA-Public Use
  Company Number: US-BRISTOL-MYERS SQUIBB COMPANY-13616214

PATIENT
  Age: 58 Year
  Sex: Female
  Weight: 70 kg

DRUGS (5)
  1. ERBITUX [Suspect]
     Indication: COLORECTAL CANCER
     Route: 042
     Dates: start: 20061204, end: 20061204
  2. IRINOTECAN HCL [Concomitant]
  3. KYTRIL [Concomitant]
     Route: 048
  4. DECADRON [Concomitant]
     Route: 042
  5. BENADRYL [Concomitant]
     Route: 042

REACTIONS (1)
  - RASH [None]
